FAERS Safety Report 4653172-8 (Version None)
Quarter: 2005Q2

REPORT INFORMATION
  Report Type: 
  Country: None (occurrence: None)
  Receive Date: 20050503
  Receipt Date: 20050420
  Transmission Date: 20051028
  Serious: Yes (Other)
  Sender: FDA-Public Use
  Company Number: 2005043785

PATIENT
  Age: 68 Year
  Sex: Female
  Weight: 57.6068 kg

DRUGS (8)
  1. ZYRTEC [Suspect]
     Indication: POLYP
     Dosage: 10 MG (10 MG, 1 IN 1 D), ORAL
     Route: 048
     Dates: start: 20020419, end: 20040101
  2. ZITHROMAX [Suspect]
     Indication: SINUSITIS
     Dosage: ORAL
     Route: 048
     Dates: start: 20020101, end: 20020101
  3. MONTELUKAST SODIUM (MONTELUKAST SODIUM) [Suspect]
     Indication: ASTHMA
     Dates: end: 20040901
  4. TRIAMCINOLONE ACETONIDE (TRIAMCINOLONE ACETONIDE (TRIAMCINOLONE ACETON [Suspect]
     Indication: ASTHMA
     Dosage: INHALATION
     Route: 055
     Dates: end: 20040901
  5. BUDESONIDE [Suspect]
     Indication: ILL-DEFINED DISORDER
     Dates: start: 20020214, end: 20040901
  6. PREDNISONE [Suspect]
     Indication: GLAUCOMA
  7. DILTIAZEM HYDROCHLORIDE [Concomitant]
  8. FEXOFENADINE HYDROCHLORIDE [Concomitant]

REACTIONS (8)
  - DRUG INEFFECTIVE [None]
  - DRUG INTERACTION [None]
  - DRY THROAT [None]
  - GLAUCOMA [None]
  - INCREASED STEROID ACTIVITY [None]
  - NASAL CONGESTION [None]
  - RASH [None]
  - TACHYCARDIA [None]
